FAERS Safety Report 9262345 (Version 3)
Quarter: 2013Q3

REPORT INFORMATION
  Report Type: Spontaneous
  Country: JP (occurrence: JP)
  Receive Date: 20130430
  Receipt Date: 20130925
  Transmission Date: 20140515
  Serious: Yes (Other)
  Sender: FDA-Public Use
  Company Number: PHHY2013JP040949

PATIENT
  Age: 68 Year
  Sex: Male

DRUGS (2)
  1. ZOMETA [Suspect]
     Indication: METASTASES TO BONE
     Dosage: UNK UKN, UNK
     Route: 041
     Dates: start: 201009, end: 201112
  2. CHEMOTHERAPEUTICS [Concomitant]
     Dosage: UNK UKN, UNK

REACTIONS (11)
  - Osteonecrosis of jaw [Recovering/Resolving]
  - Erythema [Unknown]
  - Swelling [Unknown]
  - Gingivitis [Unknown]
  - Dental fistula [Unknown]
  - Purulent discharge [Recovered/Resolved]
  - Exposed bone in jaw [Recovered/Resolved]
  - Bone lesion [Recovered/Resolved]
  - Primary sequestrum [Recovered/Resolved]
  - Osteomyelitis [Unknown]
  - Bacterial infection [Unknown]
